FAERS Safety Report 10022482 (Version 1)
Quarter: 2014Q1

REPORT INFORMATION
  Report Type: Spontaneous
  Country: GB (occurrence: GB)
  Receive Date: 20140319
  Receipt Date: 20140319
  Transmission Date: 20141002
  Serious: Yes (Hospitalization)
  Sender: FDA-Public Use
  Company Number: GB-INCYTE CORPORATION-2014IN000623

PATIENT
  Age: 70 Year
  Sex: Female

DRUGS (9)
  1. JAKAVI [Suspect]
     Indication: MYELOFIBROSIS
     Dosage: 15 MG, BID
     Route: 048
     Dates: start: 20131222
  2. JAKAVI [Suspect]
     Dosage: 15 MG, BID
     Route: 048
  3. CO-CODAMOL [Concomitant]
     Dosage: UNK
  4. ACICLOVIR [Concomitant]
  5. CYCLIZINE [Concomitant]
     Dosage: UNK
     Dates: start: 20140203
  6. METOCLOPRAMIDE [Concomitant]
  7. FUROSEMIDE [Concomitant]
     Dosage: UNK
     Dates: end: 20140203
  8. COLCHICINE [Concomitant]
     Dosage: UNK
     Dates: start: 20130801
  9. ALLOPURINOL [Concomitant]
     Dosage: UNK
     Dates: start: 20131216

REACTIONS (1)
  - Hyponatraemia [Not Recovered/Not Resolved]
